FAERS Safety Report 21529800 (Version 5)
Quarter: 2025Q1

REPORT INFORMATION
  Report Type: Spontaneous
  Country: US (occurrence: US)
  Receive Date: 20221031
  Receipt Date: 20250331
  Transmission Date: 20250409
  Serious: Yes (Hospitalization, Other)
  Sender: PFIZER
  Company Number: US-PFIZER INC-2020001665

PATIENT
  Age: 63 Year
  Sex: Female
  Weight: 101.6 kg

DRUGS (3)
  1. PREMPRO [Suspect]
     Active Substance: ESTROGENS, CONJUGATED\MEDROXYPROGESTERONE ACETATE
     Indication: Menopause
     Dosage: 1 TABLET, DAILY
     Route: 048
  2. PREMPRO [Suspect]
     Active Substance: ESTROGENS, CONJUGATED\MEDROXYPROGESTERONE ACETATE
     Dosage: 1 DF, DAILY (0.625MG /2.5 CONJUGATED ESTROGEN MEDROXYPROGESTERONE ACETATE EVERY DAY)
     Route: 048
  3. PREMPRO [Suspect]
     Active Substance: ESTROGENS, CONJUGATED\MEDROXYPROGESTERONE ACETATE

REACTIONS (10)
  - Endometrial thickening [Unknown]
  - Scar [Unknown]
  - Haemorrhage [Unknown]
  - Polyp [Unknown]
  - Postmenopausal haemorrhage [Unknown]
  - Hypoacusis [Unknown]
  - Feeling abnormal [Unknown]
  - Inflammation [Unknown]
  - Infection [Unknown]
  - Intentional product misuse [Unknown]

NARRATIVE: CASE EVENT DATE: 20191219
